FAERS Safety Report 26093557 (Version 1)
Quarter: 2025Q4

REPORT INFORMATION
  Report Type: Spontaneous
  Country: CN (occurrence: CN)
  Receive Date: 20251126
  Receipt Date: 20251126
  Transmission Date: 20260118
  Serious: Yes (Hospitalization)
  Sender: NOVO NORDISK
  Company Number: CN-NOVOPROD-1567233

PATIENT
  Sex: Female

DRUGS (2)
  1. NOVOLIN R [Suspect]
     Active Substance: INSULIN HUMAN
     Dosage: 50 IU, QD (28 UNITS IN THE MORNING AND 22 UNITS IN THE EVENING)
  2. NOVOLIN R [Suspect]
     Active Substance: INSULIN HUMAN
     Indication: Type 2 diabetes mellitus
     Dosage: (20 UNITS IN THE MORNING AND 13?14 UNITS IN THE EVENING)
     Dates: start: 2010

REACTIONS (5)
  - Urinary tract infection [Unknown]
  - Diabetes mellitus inadequate control [Unknown]
  - Hyperglycaemia [Unknown]
  - Drug resistance [Unknown]
  - Postprandial hypoglycaemia [Unknown]

NARRATIVE: CASE EVENT DATE: 20251101
